FAERS Safety Report 14431715 (Version 1)
Quarter: 2018Q1

REPORT INFORMATION
  Report Type: Spontaneous
  Country: IR (occurrence: IR)
  Receive Date: 20180124
  Receipt Date: 20180124
  Transmission Date: 20180509
  Serious: Yes (Other)
  Sender: FDA-Public Use
  Company Number: IR-LPDUSPRD-20180063

PATIENT
  Sex: Female

DRUGS (2)
  1. IRON [Suspect]
     Active Substance: IRON
     Dosage: UNKNOWN
     Route: 048
     Dates: start: 2017
  2. FERINJECT [Suspect]
     Active Substance: FERRIC CARBOXYMALTOSE
     Dosage: UNKNOWN
     Route: 040
     Dates: start: 2017

REACTIONS (1)
  - Hepatitis [Unknown]

NARRATIVE: CASE EVENT DATE: 2017
